FAERS Safety Report 8816764 (Version 2)
Quarter: 2013Q1

REPORT INFORMATION
  Report Type: Spontaneous
  Country: US (occurrence: None)
  Receive Date: 20121001
  Receipt Date: 20121107
  Transmission Date: 20140127
  Serious: Yes (Other)
  Sender: FDA-Public Use
  Company Number: FK201202824

PATIENT
  Age: 62 Year
  Sex: 0

DRUGS (3)
  1. DEXAMETHASONE [Suspect]
     Indication: PLASMA CELL MYELOMA
  2. VELCADE (BORTEZOMIB) [Concomitant]
  3. CYCLOPHOSHAMIDE (CYCLOPHOSPHAMIDE) [Concomitant]

REACTIONS (3)
  - Rib fracture [None]
  - Wound infection [None]
  - Pneumonia [None]
